FAERS Safety Report 20668072 (Version 1)
Quarter: 2022Q2

REPORT INFORMATION
  Report Type: Spontaneous
  Country: US (occurrence: US)
  Receive Date: 20220404
  Receipt Date: 20220404
  Transmission Date: 20220721
  Serious: No
  Sender: FDA-Public Use
  Company Number: US-BAYER-2022A048423

PATIENT

DRUGS (2)
  1. ALEVE [Suspect]
     Active Substance: NAPROXEN SODIUM
     Indication: Pain
     Dosage: UNK
     Route: 065
  2. ALEVE [Suspect]
     Active Substance: NAPROXEN SODIUM
     Indication: Headache

REACTIONS (1)
  - Drug ineffective [Unknown]
